FAERS Safety Report 7716268-X (Version None)
Quarter: 2011Q3

REPORT INFORMATION
  Report Type: 
  Country: None (occurrence: None)
  Receive Date: 20110812
  Receipt Date: 20110118
  Transmission Date: 20111222
  Serious: Yes (Hospitalization)
  Sender: FDA-Public Use
  Company Number: 111770

PATIENT
  Age: 52 Year
  Sex: Female
  Weight: 73.0291 kg

DRUGS (1)
  1. PACLITAXEL [Suspect]
     Indication: OVARIAN CANCER
     Dosage: 300MG IV INFUSION
     Route: 042
     Dates: start: 20110114

REACTIONS (2)
  - LETHARGY [None]
  - INCONTINENCE [None]
